FAERS Safety Report 7082149-0 (Version None)
Quarter: 2010Q4

REPORT INFORMATION
  Report Type: 
  Country: None (occurrence: None)
  Receive Date: 20101103
  Receipt Date: 20101020
  Transmission Date: 20110411
  Serious: Yes (Hospitalization, Other)
  Sender: FDA-Public Use
  Company Number: GB-AMGEN-GBRSP2010000685

PATIENT

DRUGS (4)
  1. NEULASTA [Suspect]
     Indication: CHEMOTHERAPY
     Dosage: UNK
     Dates: start: 20101012, end: 20101012
  2. FLUOROURACIL [Concomitant]
     Indication: BREAST CANCER
     Dosage: UNK
     Dates: start: 20101011
  3. EPIRUBICIN [Concomitant]
     Indication: BREAST CANCER
     Dosage: UNK
     Dates: start: 20101011
  4. CYCLOPHOSPHAMIDE [Concomitant]
     Indication: BREAST CANCER
     Dosage: UNK
     Dates: start: 20101011

REACTIONS (3)
  - DRUG INEFFECTIVE [None]
  - NEUTROPENIA [None]
  - PYREXIA [None]
